FAERS Safety Report 7590883-9 (Version None)
Quarter: 2011Q3

REPORT INFORMATION
  Report Type: 
  Country: None (occurrence: None)
  Receive Date: 20110705
  Receipt Date: 20110623
  Transmission Date: 20111222
  Serious: Yes (Other)
  Sender: FDA-Public Use
  Company Number: PHHY2011US55571

PATIENT
  Sex: Male
  Weight: 48.444 kg

DRUGS (3)
  1. EXJADE [Suspect]
     Indication: MYELODYSPLASTIC SYNDROME
     Dosage: 2250 MG, DAILY
     Route: 048
     Dates: start: 20110101
  2. CHEMOTHERAPEUTICS NOS [Concomitant]
  3. EXJADE [Suspect]
     Dosage: UNK
     Dates: start: 20110623

REACTIONS (1)
  - NEPHROLITHIASIS [None]
